FAERS Safety Report 26198178 (Version 1)
Quarter: 2025Q4

REPORT INFORMATION
  Report Type: Spontaneous
  Country: CN (occurrence: CN)
  Receive Date: 20251224
  Receipt Date: 20251224
  Transmission Date: 20260118
  Serious: Yes (Hospitalization, Other)
  Sender: PFIZER
  Company Number: CN-PFIZER INC-PV202500149345

PATIENT
  Age: 11 Year
  Sex: Male
  Weight: 36 kg

DRUGS (3)
  1. MEDROL [Suspect]
     Active Substance: METHYLPREDNISOLONE
     Indication: Nephrotic syndrome
     Dosage: 48 MG, 1X/DAY
     Route: 048
     Dates: start: 20250102
  2. METHYLPREDNISOLONE SODIUM SUCCINATE [Concomitant]
     Active Substance: METHYLPREDNISOLONE SODIUM SUCCINATE
     Indication: Nephrotic syndrome
     Dosage: 48 MG, 1X/DAY
     Route: 041
     Dates: start: 20250103, end: 20250531
  3. DEXTROSE [Concomitant]
     Active Substance: DEXTROSE MONOHYDRATE
     Indication: Vehicle solution use
     Dosage: 50 ML, 1X/DAY
     Route: 041
     Dates: start: 20250103, end: 20250531

REACTIONS (7)
  - Cushing^s syndrome [Unknown]
  - Nasal congestion [Unknown]
  - Rhinorrhoea [Unknown]
  - Eyelid oedema [Unknown]
  - Oedema peripheral [Unknown]
  - Pruritus [Unknown]
  - Skin ulcer [Unknown]

NARRATIVE: CASE EVENT DATE: 20251201
